FAERS Safety Report 5613631-8 (Version None)
Quarter: 2008Q1

REPORT INFORMATION
  Report Type: 
  Country: None (occurrence: None)
  Receive Date: 20080205
  Receipt Date: 20080124
  Transmission Date: 20080703
  Serious: Yes (Hospitalization)
  Sender: FDA-Public Use
  Company Number: US-BAYER-200810404BCC

PATIENT
  Age: 79 Year
  Sex: Female

DRUGS (5)
  1. ASPIRIN [Suspect]
     Route: 048
     Dates: end: 20071104
  2. PLAVIX [Suspect]
     Route: 048
  3. BONIVA [Suspect]
     Route: 048
     Dates: end: 20071103
  4. ANAGRELIDE HCL [Concomitant]
  5. NEXIUM [Concomitant]

REACTIONS (1)
  - HAEMORRHAGE [None]
